FAERS Safety Report 7178482-4 (Version None)
Quarter: 2010Q4

REPORT INFORMATION
  Report Type: 
  Country: None (occurrence: None)
  Receive Date: 20101220
  Receipt Date: 20101210
  Transmission Date: 20110411
  Serious: Yes (Hospitalization)
  Sender: FDA-Public Use
  Company Number: JP-AMGEN-JPNCT2010001922

PATIENT
  Sex: Female
  Weight: 60 kg

DRUGS (4)
  1. DENOSUMAB [Suspect]
     Indication: OSTEOPOROSIS
     Dosage: DENOSUMAB 60MG OR PLACEBO
     Route: 058
     Dates: start: 20090423
  2. ACECOL [Suspect]
     Indication: HYPERTENSION
     Route: 048
     Dates: start: 20040101
  3. ATELEC [Suspect]
     Indication: HYPERTENSION
     Route: 048
     Dates: start: 20040101
  4. NEW CALCICHEW D3 [Concomitant]
     Indication: OSTEOPOROSIS
     Route: 048
     Dates: start: 20090326

REACTIONS (3)
  - HEADACHE [None]
  - NAUSEA [None]
  - VERTIGO POSITIONAL [None]
